FAERS Safety Report 4936270-0 (Version None)
Quarter: 2006Q1

REPORT INFORMATION
  Report Type: 
  Country: None (occurrence: None)
  Receive Date: 20060302
  Receipt Date: 20060217
  Transmission Date: 20060701
  Serious: No
  Sender: FDA-Public Use
  Company Number: 2006US-01668

PATIENT
  Age: 11 Year
  Sex: Male

DRUGS (2)
  1. ACETAMINOPHEN [Suspect]
  2. ROPIVACAINE [Suspect]

REACTIONS (3)
  - HEADACHE [None]
  - MEDICATION ERROR [None]
  - VOMITING [None]
